FAERS Safety Report 13744704 (Version 1)
Quarter: 2017Q3

REPORT INFORMATION
  Report Type: Spontaneous
  Country: US (occurrence: US)
  Receive Date: 20170711
  Receipt Date: 20170711
  Transmission Date: 20171127
  Serious: Yes (Hospitalization)
  Sender: FDA-Public Use
  Company Number: None

PATIENT
  Age: 56 Year
  Sex: Female
  Weight: 116 kg

DRUGS (3)
  1. HEPARIN [Concomitant]
     Active Substance: HEPARIN SODIUM
  2. LOVENOX [Suspect]
     Active Substance: ENOXAPARIN SODIUM
     Indication: DEEP VEIN THROMBOSIS
     Dosage: ?          OTHER DOSE:MG;?
     Route: 058
     Dates: start: 20170628, end: 20170629
  3. TRANEXAMIC ACID. [Suspect]
     Active Substance: TRANEXAMIC ACID
     Indication: HAEMORRHAGE PROPHYLAXIS
     Dosage: ?          OTHER DOSE:GM;OTHER FREQUENCY:ONE;?
     Route: 040
     Dates: start: 20170627, end: 20170627

REACTIONS (3)
  - Deep vein thrombosis [None]
  - Treatment failure [None]
  - Swelling [None]

NARRATIVE: CASE EVENT DATE: 20170705
